FAERS Safety Report 11401252 (Version 1)
Quarter: 2015Q3

REPORT INFORMATION
  Report Type: Spontaneous
  Country: US (occurrence: US)
  Receive Date: 20150820
  Receipt Date: 20150820
  Transmission Date: 20151125
  Serious: No
  Sender: FDA-Public Use
  Company Number: US-009507513-1508USA005040

PATIENT
  Age: 17 Year
  Sex: Female
  Weight: 50.34 kg

DRUGS (1)
  1. NEXPLANON [Suspect]
     Active Substance: ETONOGESTREL
     Dosage: UNK, ONE INSERTION
     Route: 059
     Dates: start: 20150810

REACTIONS (2)
  - Device difficult to use [Not Recovered/Not Resolved]
  - Product quality issue [Unknown]

NARRATIVE: CASE EVENT DATE: 20150810
